FAERS Safety Report 11926278 (Version 1)
Quarter: 2016Q1

REPORT INFORMATION
  Report Type: Spontaneous
  Country: AU (occurrence: AU)
  Receive Date: 20160119
  Receipt Date: 20160119
  Transmission Date: 20160526
  Serious: Yes (Other)
  Sender: FDA-Public Use
  Company Number: AU-ROCHE-1695605

PATIENT
  Sex: Female

DRUGS (4)
  1. MYCOPHENOLATE MOFETIL. [Suspect]
     Active Substance: MYCOPHENOLATE MOFETIL
     Indication: FOCAL SEGMENTAL GLOMERULOSCLEROSIS
  2. MYCOPHENOLATE MOFETIL. [Suspect]
     Active Substance: MYCOPHENOLATE MOFETIL
     Indication: NEPHROTIC SYNDROME
     Route: 065
  3. CYCLOSPORIN [Suspect]
     Active Substance: CYCLOSPORINE
     Indication: FOCAL SEGMENTAL GLOMERULOSCLEROSIS
  4. CYCLOSPORIN [Suspect]
     Active Substance: CYCLOSPORINE
     Indication: NEPHROTIC SYNDROME
     Route: 065

REACTIONS (2)
  - Nephropathy toxic [Unknown]
  - Nephrotic syndrome [Unknown]
